FAERS Safety Report 5121819-8 (Version None)
Quarter: 2006Q4

REPORT INFORMATION
  Report Type: 
  Country: None (occurrence: None)
  Receive Date: 20061003
  Receipt Date: 20060922
  Transmission Date: 20070319
  Serious: Yes (Hospitalization)
  Sender: FDA-Public Use
  Company Number: MEDI-0004403

PATIENT
  Age: 3 Month
  Weight: 3.22 kg

DRUGS (4)
  1. SYNAGIS [Suspect]
     Indication: ANTIVIRAL PROPHYLAXIS
     Dosage: 1 IN 30 D, INTRAMUSCULAR-SEE IMAGE
     Route: 030
     Dates: start: 20051022, end: 20051216
  2. SYNAGIS [Suspect]
     Indication: ANTIVIRAL PROPHYLAXIS
     Dosage: 1 IN 30 D, INTRAMUSCULAR-SEE IMAGE
     Route: 030
     Dates: start: 20051116
  3. SYNAGIS [Suspect]
     Indication: ANTIVIRAL PROPHYLAXIS
     Dosage: 1 IN 30 D, INTRAMUSCULAR-SEE IMAGE
     Route: 030
     Dates: start: 20060118
  4. SYNAGIS [Suspect]
     Indication: ANTIVIRAL PROPHYLAXIS
     Dosage: 1 IN 30 D, INTRAMUSCULAR-SEE IMAGE
     Route: 030
     Dates: start: 20060210

REACTIONS (2)
  - BRONCHIOLITIS [None]
  - URINARY TRACT INFECTION [None]
